FAERS Safety Report 5268483-5 (Version None)
Quarter: 2007Q1

REPORT INFORMATION
  Report Type: 
  Country: None (occurrence: None)
  Receive Date: 20061213
  Receipt Date: 20040812
  Transmission Date: 20070707
  Serious: Yes (Other)
  Sender: FDA-Public Use
  Company Number: 2004UW17191

PATIENT
  Sex: Female

DRUGS (1)
  1. IRESSA [Suspect]

REACTIONS (4)
  - NASAL CONGESTION [None]
  - RHINORRHOEA [None]
  - SINUS CONGESTION [None]
  - SWELLING [None]
